FAERS Safety Report 12218595 (Version 1)
Quarter: 2016Q1

REPORT INFORMATION
  Report Type: Spontaneous
  Country: US (occurrence: US)
  Receive Date: 20160329
  Receipt Date: 20160329
  Transmission Date: 20160526
  Serious: Yes (Other)
  Sender: FDA-Public Use
  Company Number: US-MDT-ADR-2016-00272

PATIENT
  Age: 69 Year
  Sex: Male

DRUGS (4)
  1. DILAUDID [Suspect]
     Active Substance: HYDROMORPHONE HYDROCHLORIDE
     Dosage: 0.2 MG/DAY
     Route: 037
     Dates: start: 20160119
  2. MORPHINE [Suspect]
     Active Substance: MORPHINE
     Dosage: 1 MG/DAY
     Route: 037
     Dates: start: 2010
  3. BUPIVACAINE [Suspect]
     Active Substance: BUPIVACAINE
     Dosage: 0.35 MG/DAY
     Route: 037
     Dates: start: 201009
  4. LIORESAL [Suspect]
     Active Substance: BACLOFEN
     Indication: PAIN
     Dosage: 30 MCG/DAY
     Route: 037
     Dates: start: 20150825

REACTIONS (2)
  - Influenza like illness [Unknown]
  - Pain [Unknown]

NARRATIVE: CASE EVENT DATE: 20160205
